FAERS Safety Report 8584083-3 (Version None)
Quarter: 2012Q3

REPORT INFORMATION
  Report Type: 
  Country: None (occurrence: None)
  Receive Date: 20120810
  Receipt Date: 20120727
  Transmission Date: 20120928
  Serious: Yes (Other)
  Sender: FDA-Public Use
  Company Number: US-009507513-1207USA012021

PATIENT

DRUGS (1)
  1. DULERA [Suspect]
     Dosage: 2 DF, UNK
     Route: 055

REACTIONS (4)
  - NAUSEA [None]
  - HEADACHE [None]
  - DIZZINESS [None]
  - FEELING ABNORMAL [None]
